FAERS Safety Report 19354970 (Version 1)
Quarter: 2021Q2

REPORT INFORMATION
  Report Type: Spontaneous
  Country: US (occurrence: US)
  Receive Date: 20210601
  Receipt Date: 20210601
  Transmission Date: 20210717
  Serious: No
  Sender: FDA-Public Use
  Company Number: US-DRREDDYS-USA/USA/21/0135837

PATIENT
  Age: 72 Year
  Sex: Female
  Weight: 45 kg

DRUGS (1)
  1. IBANDRONATE SODIUM. [Suspect]
     Active Substance: IBANDRONATE SODIUM
     Indication: BONE DISORDER
     Dates: start: 202010

REACTIONS (2)
  - Gait disturbance [Unknown]
  - Arthralgia [Unknown]
